FAERS Safety Report 7074963-2 (Version None)
Quarter: 2010Q4

REPORT INFORMATION
  Report Type: 
  Country: None (occurrence: None)
  Receive Date: 20101029
  Receipt Date: 20101014
  Transmission Date: 20110411
  Serious: Yes (Life-Threatening)
  Sender: FDA-Public Use
  Company Number: US-AMGEN GMBH-QUU440208

PATIENT

DRUGS (9)
  1. NPLATE [Suspect]
     Indication: IDIOPATHIC THROMBOCYTOPENIC PURPURA
     Dosage: 122 A?G, QWK
     Route: 058
     Dates: start: 20100607
  2. CORTICOSTEROID NOS [Concomitant]
     Dosage: UNK UNK, UNK
     Dates: start: 20100521
  3. PREDNISONE [Concomitant]
  4. FUROSEMIDE [Concomitant]
  5. OXYCODONE [Concomitant]
  6. FAMOTIDINE [Concomitant]
  7. PIROXICAM [Concomitant]
  8. KADIAN [Concomitant]
  9. COUMADIN [Concomitant]

REACTIONS (5)
  - ANTIPHOSPHOLIPID ANTIBODIES POSITIVE [None]
  - BLOOD HOMOCYSTEINE INCREASED [None]
  - BLOOD SMEAR TEST ABNORMAL [None]
  - CARDIOLIPIN ANTIBODY POSITIVE [None]
  - DEEP VEIN THROMBOSIS [None]
